FAERS Safety Report 6770815-3 (Version None)
Quarter: 2010Q2

REPORT INFORMATION
  Report Type: 
  Country: None (occurrence: None)
  Receive Date: 20100614
  Receipt Date: 20100614
  Transmission Date: 20101027
  Serious: Yes (Other)
  Sender: FDA-Public Use
  Company Number: None

PATIENT
  Sex: Male

DRUGS (1)
  1. VASOTEC [Suspect]
     Indication: HYPERTENSION
     Dosage: 5 MG. QD PO (FOR HTN)
     Route: 048
     Dates: start: 20100514

REACTIONS (4)
  - COUGH [None]
  - EYE PAIN [None]
  - NAUSEA [None]
  - RHINORRHOEA [None]
